FAERS Safety Report 25882071 (Version 1)
Quarter: 2025Q4

REPORT INFORMATION
  Report Type: Spontaneous
  Country: CA (occurrence: CA)
  Receive Date: 20251006
  Receipt Date: 20251006
  Transmission Date: 20260118
  Serious: Yes (Other)
  Sender: CELLTRION
  Company Number: CA-CELLTRION INC.-2025CA022574

PATIENT

DRUGS (8)
  1. INFLIXIMAB [Suspect]
     Active Substance: INFLIXIMAB
     Indication: Crohn^s disease
     Dosage: 600 MG, EVERY 4 WEEKS
     Route: 042
     Dates: start: 20250704
  2. INFLIXIMAB [Suspect]
     Active Substance: INFLIXIMAB
     Dosage: - MAINTENANCE - 600 MG - IV  (INTRAVENOUS) EVERY 4 WEEKS
     Route: 042
     Dates: start: 20250704
  3. INFLIXIMAB [Suspect]
     Active Substance: INFLIXIMAB
     Dosage: - MAINTENANCE - 600 MG - IV  (INTRAVENOUS) EVERY 4 WEEKS
     Route: 042
     Dates: start: 20250903
  4. INFLIXIMAB [Suspect]
     Active Substance: INFLIXIMAB
     Dosage: - MAINTENANCE - 600 MG - IV  (INTRAVENOUS) EVERY 4 WEEKS
     Route: 042
     Dates: start: 20250926
  5. SYNTHROID [Concomitant]
     Active Substance: LEVOTHYROXINE SODIUM
     Indication: Product used for unknown indication
     Dosage: 75 MG
     Route: 048
  6. DEXEDRINE [Concomitant]
     Active Substance: DEXTROAMPHETAMINE SULFATE
     Indication: Product used for unknown indication
     Dosage: 15 MG
     Route: 048
  7. ZOPICLONE [Concomitant]
     Active Substance: ZOPICLONE
     Indication: Product used for unknown indication
     Dosage: 5 MG
     Route: 048
  8. BUTYLSCOPOLAMINE BROMIDE [Concomitant]
     Active Substance: BUTYLSCOPOLAMINE BROMIDE
     Indication: Product used for unknown indication
     Dosage: 10 MG
     Route: 048

REACTIONS (3)
  - Harvey-Bradshaw index increased [Unknown]
  - Inappropriate schedule of product administration [Unknown]
  - Off label use [Unknown]

NARRATIVE: CASE EVENT DATE: 20250704
